FAERS Safety Report 12351040 (Version 1)
Quarter: 2016Q2

REPORT INFORMATION
  Report Type: Spontaneous
  Country: US (occurrence: US)
  Receive Date: 20160510
  Receipt Date: 20160510
  Transmission Date: 20160815
  Serious: Yes (Other)
  Sender: FDA-Public Use
  Company Number: ADR-2015-01465

PATIENT
  Age: 50 Year
  Sex: Male

DRUGS (5)
  1. COMPOUNDED BACLOFEN [Suspect]
     Active Substance: BACLOFEN
     Dosage: 234.9 MCG/DAY
     Route: 037
  2. MARCAINE [Suspect]
     Active Substance: BUPIVACAINE HYDROCHLORIDE
     Dosage: 1.42 MG/DAY
     Route: 037
  3. CLONIDINE. [Suspect]
     Active Substance: CLONIDINE
     Dosage: 117.4 MCG/DAY
     Route: 037
  4. TRAMADOL. [Suspect]
     Active Substance: TRAMADOL
     Route: 048
  5. DILAUDID [Suspect]
     Active Substance: HYDROMORPHONE HYDROCHLORIDE
     Dosage: 4.69 MG/DAY
     Route: 037

REACTIONS (10)
  - Joint injury [Unknown]
  - Pain [Recovered/Resolved]
  - Spinal cord injury [Unknown]
  - Back pain [Unknown]
  - Fall [Unknown]
  - Malaise [Unknown]
  - Abdominal discomfort [Unknown]
  - Face injury [Unknown]
  - Anxiety [Unknown]
  - Drug withdrawal syndrome [Unknown]

NARRATIVE: CASE EVENT DATE: 2013
